FAERS Safety Report 5868640-0 (Version None)
Quarter: 2008Q3

REPORT INFORMATION
  Report Type: 
  Country: None (occurrence: None)
  Receive Date: 20080903
  Receipt Date: 20080901
  Transmission Date: 20090109
  Serious: Yes (Hospitalization)
  Sender: FDA-Public Use
  Company Number: SE-BAYER-200716896GDS

PATIENT
  Sex: Male

DRUGS (1)
  1. CIPROFLOXACIN HCL [Suspect]
     Indication: ABDOMINAL INFECTION
     Route: 065

REACTIONS (3)
  - COUGH [None]
  - DIARRHOEA [None]
  - EOSINOPHIL COUNT INCREASED [None]
